FAERS Safety Report 7918070-2 (Version None)
Quarter: 2011Q4

REPORT INFORMATION
  Report Type: 
  Country: None (occurrence: None)
  Receive Date: 20111116
  Receipt Date: 20110802
  Transmission Date: 20120403
  Serious: No
  Sender: FDA-Public Use
  Company Number: US-BAYER-2011-070692

PATIENT
  Sex: Female

DRUGS (2)
  1. ALEVE (CAPLET) [Suspect]
     Indication: DYSMENORRHOEA
     Dosage: 2 DF, ONCE
     Route: 048
  2. ALEVE (CAPLET) [Suspect]
     Indication: MIGRAINE
     Dosage: 2 DF, UNK
     Route: 048
     Dates: start: 20110801

REACTIONS (2)
  - MIGRAINE [None]
  - DYSMENORRHOEA [None]
